FAERS Safety Report 4293344-8 (Version None)
Quarter: 2004Q1

REPORT INFORMATION
  Report Type: 
  Country: None (occurrence: None)
  Receive Date: 20040126
  Receipt Date: 20031112
  Transmission Date: 20041129
  Serious: No
  Sender: FDA-Public Use
  Company Number: USA031049571

PATIENT
  Age: 75 Year
  Sex: Female

DRUGS (4)
  1. FORTEO [Suspect]
     Dates: start: 20030301
  2. ALBUTEROL [Concomitant]
  3. UNIPHYL [Concomitant]
  4. PREDNISONE [Concomitant]

REACTIONS (3)
  - DIFFICULTY IN WALKING [None]
  - DYSPNOEA EXERTIONAL [None]
  - HEART RATE INCREASED [None]
